FAERS Safety Report 4370027-7 (Version None)
Quarter: 2004Q2

REPORT INFORMATION
  Report Type: 
  Country: None (occurrence: None)
  Receive Date: 20040526
  Receipt Date: 20031215
  Transmission Date: 20050107
  Serious: Yes (Hospitalization)
  Sender: FDA-Public Use
  Company Number: USA031254658

PATIENT
  Age: 26 Year
  Sex: Male

DRUGS (1)
  1. ZYPREXA [Suspect]
     Indication: SCHIZOPHRENIA
     Dosage: 30 MG/DAY

REACTIONS (2)
  - PRESCRIBED OVERDOSE [None]
  - PSYCHIATRIC SYMPTOM [None]
